FAERS Safety Report 24582986 (Version 2)
Quarter: 2024Q4

REPORT INFORMATION
  Report Type: Report from Study
  Country: CH (occurrence: CH)
  Receive Date: 20241106
  Receipt Date: 20241213
  Transmission Date: 20250115
  Serious: Yes (Other)
  Sender: EMD SERONO INC
  Company Number: CH-Merck Healthcare KGaA-2024047089

PATIENT
  Age: 30 Year
  Sex: Female
  Weight: 72 kg

DRUGS (4)
  1. MAVENCLAD [Suspect]
     Active Substance: CLADRIBINE
     Indication: Multiple sclerosis
     Dosage: YEAR ONE MONTH ONE THERAPY
     Dates: start: 20221012, end: 20221016
  2. MAVENCLAD [Suspect]
     Active Substance: CLADRIBINE
     Dosage: YEAR ONE MONTH TWO THERAPY
     Dates: start: 20221116, end: 20221120
  3. MAVENCLAD [Suspect]
     Active Substance: CLADRIBINE
     Dosage: YEAR TWO MONTH ONE THERAPY
     Dates: start: 20231011, end: 20231015
  4. MAVENCLAD [Suspect]
     Active Substance: CLADRIBINE
     Dosage: YEAR TWO MONTH TWO THERAPY
     Dates: start: 20231113, end: 20231117

REACTIONS (2)
  - Pneumonia bacterial [Unknown]
  - White blood cell count decreased [Recovering/Resolving]

NARRATIVE: CASE EVENT DATE: 20231201
